FAERS Safety Report 5163699-0 (Version None)
Quarter: 2006Q4

REPORT INFORMATION
  Report Type: 
  Country: None (occurrence: None)
  Receive Date: 20061204
  Receipt Date: 20020121
  Transmission Date: 20070319
  Serious: Yes (Hospitalization)
  Sender: FDA-Public Use
  Company Number: FR-GLAXOSMITHKLINE-B0133814A

PATIENT
  Age: 1 Day
  Sex: Female
  Weight: 2.2 kg

DRUGS (4)
  1. RETROVIR [Suspect]
     Indication: ANTIVIRAL PROPHYLAXIS
     Route: 048
  2. RETROVIR [Suspect]
     Indication: HIV INFECTION
     Dosage: 500MG PER DAY
     Route: 048
     Dates: start: 19951201
  3. MORPHINE [Concomitant]
     Dates: start: 19951201
  4. BROMAZEPAM [Concomitant]
     Dates: start: 19951201

REACTIONS (25)
  - ABDOMINAL DISTENSION [None]
  - CULTURE POSITIVE [None]
  - CYTOMEGALOVIRUS INFECTION [None]
  - DRUG WITHDRAWAL SYNDROME [None]
  - DYSKINESIA [None]
  - FEEDING DISORDER NEONATAL [None]
  - HEPATOSPLENOMEGALY [None]
  - HYPERMETROPIA [None]
  - HYPERTONIA [None]
  - HYPERTONIA NEONATAL [None]
  - ILL-DEFINED DISORDER [None]
  - MACROCYTOSIS [None]
  - NAUSEA [None]
  - NEUTROPENIA [None]
  - NEUTROPENIA NEONATAL [None]
  - PSYCHOMOTOR SKILLS IMPAIRED [None]
  - RESTLESSNESS [None]
  - SMALL FOR DATES BABY [None]
  - SPEECH DISORDER DEVELOPMENTAL [None]
  - STRABISMUS [None]
  - TALIPES [None]
  - THROMBOCYTHAEMIA [None]
  - TORTICOLLIS [None]
  - TREMOR [None]
  - TREMOR NEONATAL [None]
